FAERS Safety Report 17829628 (Version 1)
Quarter: 2020Q2

REPORT INFORMATION
  Report Type: Spontaneous
  Country: US (occurrence: US)
  Receive Date: 20200527
  Receipt Date: 20200527
  Transmission Date: 20200714
  Serious: Yes (Hospitalization)
  Sender: FDA-Public Use
  Company Number: None

PATIENT
  Sex: Female

DRUGS (11)
  1. VERZENIO [Suspect]
     Active Substance: ABEMACICLIB
     Indication: BREAST CANCER FEMALE
     Route: 048
     Dates: start: 20191219
  2. MAG OX [Concomitant]
     Active Substance: MAGNESIUM OXIDE
  3. FUROSEMIDE. [Concomitant]
     Active Substance: FUROSEMIDE
  4. METFORMIN [Concomitant]
     Active Substance: METFORMIN HYDROCHLORIDE
  5. SIMIVASTATIN [Concomitant]
  6. LOSARTAN. [Concomitant]
     Active Substance: LOSARTAN
  7. ATENOLOL. [Concomitant]
     Active Substance: ATENOLOL
  8. ANASTROZOLE. [Concomitant]
     Active Substance: ANASTROZOLE
  9. CLONIDINE. [Concomitant]
     Active Substance: CLONIDINE
  10. FOLIC ACID. [Concomitant]
     Active Substance: FOLIC ACID
  11. ALLOPURINOL. [Concomitant]
     Active Substance: ALLOPURINOL

REACTIONS (1)
  - Vomiting [None]
